FAERS Safety Report 16539674 (Version 1)
Quarter: 2019Q3

REPORT INFORMATION
  Report Type: Report from Study
  Country: GB (occurrence: GB)
  Receive Date: 20190708
  Receipt Date: 20190708
  Transmission Date: 20191004
  Serious: Yes (Other)
  Sender: FDA-Public Use
  Company Number: GB-EMD SERONO-9100779

PATIENT
  Age: 28 Year
  Sex: Female

DRUGS (1)
  1. MAVENCLAD [Suspect]
     Active Substance: CLADRIBINE
     Indication: MULTIPLE SCLEROSIS
     Dosage: FIRST WEEK THERAPY: TWO TABLETS ON DAYS 1 TO 2 AND ONE TABLET ON DAYS 3 TO 5 (EACH OF 10 MG).
     Route: 048
     Dates: start: 20190107

REACTIONS (4)
  - Rash papular [Not Recovered/Not Resolved]
  - Furuncle [Not Recovered/Not Resolved]
  - Pneumonia [Unknown]
  - Fungal skin infection [Not Recovered/Not Resolved]

NARRATIVE: CASE EVENT DATE: 201904
